FAERS Safety Report 6023520-5 (Version None)
Quarter: 2008Q4

REPORT INFORMATION
  Report Type: 
  Country: None (occurrence: None)
  Receive Date: 20081230
  Receipt Date: 20081217
  Transmission Date: 20090506
  Serious: Yes (Other)
  Sender: FDA-Public Use
  Company Number: PHBS2008US06707

PATIENT
  Age: 50 Year
  Sex: Male

DRUGS (1)
  1. PROLEUKIN [Suspect]
     Indication: RENAL CELL CARCINOMA
     Dosage: 600000 IU/KG, Q8H

REACTIONS (12)
  - ARTHRALGIA [None]
  - ERYTHEMA [None]
  - GASTROINTESTINAL HAEMORRHAGE [None]
  - GINGIVAL BLEEDING [None]
  - HAEMORRHAGE [None]
  - MALAISE [None]
  - OEDEMA PERIPHERAL [None]
  - PETECHIAE [None]
  - PRURITUS GENERALISED [None]
  - RASH [None]
  - SKIN EXFOLIATION [None]
  - VITAMIN C DEFICIENCY [None]
